FAERS Safety Report 23866333 (Version 1)
Quarter: 2024Q2

REPORT INFORMATION
  Report Type: Spontaneous
  Country: CA (occurrence: CA)
  Receive Date: 20240517
  Receipt Date: 20240517
  Transmission Date: 20240716
  Serious: Yes (Other)
  Sender: FDA-Public Use
  Company Number: None

PATIENT
  Age: 20 Year
  Sex: Male

DRUGS (8)
  1. MYCOPHENOLATE MOFETIL [Suspect]
     Active Substance: MYCOPHENOLATE MOFETIL
     Indication: Stiff person syndrome
  2. AZATHIOPRINE [Suspect]
     Active Substance: AZATHIOPRINE
     Indication: Stiff person syndrome
  3. BELIMUMAB [Suspect]
     Active Substance: BELIMUMAB
     Indication: Stiff person syndrome
  4. HUMAN IMMUNOGLOBULIN G [Suspect]
     Active Substance: HUMAN IMMUNOGLOBULIN G
     Indication: Stiff person syndrome
     Dosage: SOLUTION INTRAVENOUS
     Route: 065
  5. MENINGOCOCCAL POLYSACCHARIDE VACCINE A NOS [Suspect]
     Active Substance: MENINGOCOCCAL POLYSACCHARIDE VACCINE A\NEISSERIA MENINGITIDIS GROUP A CAPSULAR POLYSACCHARIDE ANTIGE
     Indication: Prophylaxis
  6. PENICILLIN [Suspect]
     Active Substance: PENICILLIN
     Indication: Prophylaxis
  7. RITUXIMAB [Suspect]
     Active Substance: RITUXIMAB
     Indication: Stiff person syndrome
  8. ECULIZUMAB [Suspect]
     Active Substance: ECULIZUMAB
     Indication: Stiff person syndrome
     Dosage: SOLUTION INTRAVENOUS

REACTIONS (3)
  - Drug hypersensitivity [Unknown]
  - Meningitis meningococcal [Unknown]
  - Vaccination failure [Unknown]
